FAERS Safety Report 6700152-4 (Version None)
Quarter: 2010Q2

REPORT INFORMATION
  Report Type: 
  Country: None (occurrence: None)
  Receive Date: 20100426
  Receipt Date: 20091117
  Transmission Date: 20101027
  Serious: Yes (Other)
  Sender: FDA-Public Use
  Company Number: WAES 0911USA02836

PATIENT
  Age: 61 Year
  Sex: Female
  Weight: 94.3482 kg

DRUGS (2)
  1. SINGULAIR [Suspect]
     Indication: BRONCHIAL HYPERREACTIVITY
     Dosage: 10 MG/PO
     Route: 048
     Dates: end: 20091117
  2. SINGULAIR [Suspect]
     Indication: RHINITIS
     Dosage: 10 MG/PO
     Route: 048
     Dates: end: 20091117

REACTIONS (2)
  - DEPRESSED MOOD [None]
  - DEPRESSION [None]
